FAERS Safety Report 9229074 (Version 5)
Quarter: 2020Q4

REPORT INFORMATION
  Report Type: Spontaneous
  Country: US (occurrence: US)
  Receive Date: 20130412
  Receipt Date: 20201009
  Transmission Date: 20210114
  Serious: Yes (Other)
  Sender: FDA-Public Use
  Company Number: US-PFIZER INC-2013114981

PATIENT
  Age: 56 Year
  Sex: Female
  Weight: 68 kg

DRUGS (5)
  1. RAPAMUNE [Interacting]
     Active Substance: SIROLIMUS
     Dosage: 0.5 MG, DAILY (RAPAMUNE 0.5MG -TAKE ONE TABLET)
     Route: 048
  2. RAPAMUNE [Interacting]
     Active Substance: SIROLIMUS
     Dosage: 0.5 MG, 2X/DAY
     Route: 048
  3. PROGRAF [Interacting]
     Active Substance: TACROLIMUS
     Dosage: UNK
  4. RAPAMUNE [Suspect]
     Active Substance: SIROLIMUS
     Indication: LIVER TRANSPLANT
     Dosage: 0.5 MG, DAILY (0.5MG BROWN TABLET BY MOUTH DAILY)
     Route: 048
     Dates: start: 2009
  5. MYCOPHENOLATE [Interacting]
     Active Substance: MYCOPHENOLIC ACID
     Dosage: UNK

REACTIONS (7)
  - Seizure [Unknown]
  - Drug interaction [Unknown]
  - Product use in unapproved indication [Unknown]
  - Brain injury [Unknown]
  - Cerebral haemorrhage [Unknown]
  - Off label use [Unknown]
  - Coma [Unknown]

NARRATIVE: CASE EVENT DATE: 2009
